FAERS Safety Report 18306033 (Version 2)
Quarter: 2020Q4

REPORT INFORMATION
  Report Type: Spontaneous
  Country: CA (occurrence: CA)
  Receive Date: 20200924
  Receipt Date: 20201111
  Transmission Date: 20210113
  Serious: Yes (Hospitalization, Other)
  Sender: FDA-Public Use
  Company Number: CA-UNITED THERAPEUTICS-UNT-2020-006034

PATIENT
  Age: 39 Year
  Sex: Female

DRUGS (1)
  1. REMODULIN [Suspect]
     Active Substance: TREPROSTINIL
     Indication: PULMONARY ARTERIAL HYPERTENSION
     Dosage: 0.0417 ?G/KG, CONTINUING
     Route: 041
     Dates: start: 20190513

REACTIONS (5)
  - Live birth [Recovered/Resolved]
  - Serratia sepsis [Recovering/Resolving]
  - False labour [Recovering/Resolving]
  - Device related sepsis [Recovering/Resolving]
  - Maternal exposure during pregnancy [Recovered/Resolved]

NARRATIVE: CASE EVENT DATE: 2020
